FAERS Safety Report 5872862-2 (Version None)
Quarter: 2008Q3

REPORT INFORMATION
  Report Type: 
  Country: None (occurrence: None)
  Receive Date: 20080905
  Receipt Date: 20080828
  Transmission Date: 20090109
  Serious: Yes (Other)
  Sender: FDA-Public Use
  Company Number: GB-MERCK-0806GBR00029

PATIENT
  Age: 7 Year
  Sex: Male
  Weight: 27 kg

DRUGS (4)
  1. SINGULAIR [Suspect]
     Indication: ASTHMA
     Route: 048
     Dates: start: 20070407, end: 20080501
  2. ALBUTEROL [Concomitant]
     Indication: ASTHMA
  3. BECLOMETHASONE DIPROPIONATE [Concomitant]
     Indication: ASTHMA
     Route: 065
     Dates: start: 20061101
  4. SALMETEROL XINAFOATE [Concomitant]
     Indication: ASTHMA
     Route: 065
     Dates: start: 20061101

REACTIONS (2)
  - ABNORMAL BEHAVIOUR [None]
  - DEPRESSED MOOD [None]
